FAERS Safety Report 20092539 (Version 1)
Quarter: 2021Q4

REPORT INFORMATION
  Report Type: Spontaneous
  Country: SE (occurrence: SE)
  Receive Date: 20211119
  Receipt Date: 20211119
  Transmission Date: 20220303
  Serious: Yes (Hospitalization, Other)
  Sender: FDA-Public Use
  Company Number: SE-CELLTRION INC.-2021SE015483

PATIENT

DRUGS (12)
  1. RITUXIMAB [Suspect]
     Active Substance: RITUXIMAB
     Indication: Hodgkin^s disease
     Dosage: 375 MG/M2, 0.25 WEEK
     Route: 065
     Dates: start: 200804
  2. VINCRISTINE [Suspect]
     Active Substance: VINCRISTINE
     Indication: Vanishing bile duct syndrome
     Dosage: UNK
     Route: 065
     Dates: start: 200804
  3. PROCARBAZINE [Suspect]
     Active Substance: PROCARBAZINE
     Indication: Vanishing bile duct syndrome
     Dosage: UNK
     Route: 065
     Dates: start: 200804
  4. PREDNISONE [Suspect]
     Active Substance: PREDNISONE
     Indication: Vanishing bile duct syndrome
     Dosage: UNK
     Route: 066
     Dates: start: 200804
  5. ETOPOSIDE [Suspect]
     Active Substance: ETOPOSIDE
     Indication: Vanishing bile duct syndrome
     Dosage: UNK
     Route: 065
     Dates: start: 200804
  6. BLEOMYCIN [Suspect]
     Active Substance: BLEOMYCIN SULFATE
     Indication: Vanishing bile duct syndrome
     Dosage: UNK
     Route: 065
     Dates: start: 200804
  7. CYCLOPHOSPHAMIDE [Suspect]
     Active Substance: CYCLOPHOSPHAMIDE
     Indication: Vanishing bile duct syndrome
     Dosage: UNK
     Route: 065
     Dates: start: 200804
  8. DOXORUBICIN [Suspect]
     Active Substance: DOXORUBICIN
     Indication: Vanishing bile duct syndrome
     Dosage: UNK
     Route: 065
     Dates: start: 200804
  9. LAMIVUDINE [Concomitant]
     Active Substance: LAMIVUDINE
  10. PENTACARINAT [Concomitant]
     Active Substance: PENTAMIDINE ISETHIONATE
  11. ACYCLOVIR [Concomitant]
     Active Substance: ACYCLOVIR
  12. SULFAMETHOXAZOLE\TRIMETHOPRIM [Concomitant]
     Active Substance: SULFAMETHOXAZOLE\TRIMETHOPRIM

REACTIONS (4)
  - Klebsiella infection [Unknown]
  - Neutropenic sepsis [Unknown]
  - Neutropenia [Recovered/Resolved]
  - Off label use [Unknown]
